FAERS Safety Report 10476354 (Version 1)
Quarter: 2014Q3

REPORT INFORMATION
  Report Type: Spontaneous
  Country: US (occurrence: US)
  Receive Date: 20140925
  Receipt Date: 20140925
  Transmission Date: 20150326
  Serious: Yes (Hospitalization)
  Sender: FDA-Public Use
  Company Number: US-B.I. PHARMACEUTICALS,INC./RIDGEFIELD-2014-BI-45221BP

PATIENT
  Age: 65 Year
  Sex: Female

DRUGS (3)
  1. PRADAXA [Suspect]
     Active Substance: DABIGATRAN ETEXILATE MESYLATE
     Indication: ATRIAL FIBRILLATION
     Dosage: 300 MG
     Route: 065
  2. LEVOTHYROXINE [Concomitant]
     Active Substance: LEVOTHYROXINE
     Indication: HYPOTHYROIDISM
     Route: 065
  3. PRADAXA [Suspect]
     Active Substance: DABIGATRAN ETEXILATE MESYLATE
     Dosage: 150 MG
     Route: 065
     Dates: end: 20111001

REACTIONS (8)
  - Dyspepsia [Unknown]
  - Contusion [Unknown]
  - Asthenia [Unknown]
  - Abdominal pain upper [Unknown]
  - Upper gastrointestinal haemorrhage [Unknown]
  - Abdominal pain upper [Unknown]
  - Melaena [Unknown]
  - Dizziness [Unknown]

NARRATIVE: CASE EVENT DATE: 20111003
